FAERS Safety Report 6557573-2 (Version None)
Quarter: 2010Q1

REPORT INFORMATION
  Report Type: 
  Country: None (occurrence: None)
  Receive Date: 20100129
  Receipt Date: 20100121
  Transmission Date: 20100710
  Serious: Yes (Other)
  Sender: FDA-Public Use
  Company Number: JP-SANOFI-AVENTIS-2009SA011163

PATIENT
  Age: 85 Year
  Sex: Female

DRUGS (4)
  1. MYSLEE [Suspect]
     Route: 048
     Dates: start: 20091208
  2. FENTANYL [Concomitant]
     Indication: CANCER PAIN
     Route: 062
     Dates: start: 20091203, end: 20091221
  3. VOLTAREN [Concomitant]
     Indication: CANCER PAIN
     Route: 054
     Dates: start: 20091204
  4. REPLAS 3 [Concomitant]
     Indication: DRUG USE FOR UNKNOWN INDICATION
     Route: 065
     Dates: start: 20091203, end: 20091228

REACTIONS (1)
  - DELIRIUM [None]
